FAERS Safety Report 10348102 (Version 1)
Quarter: 2014Q3

REPORT INFORMATION
  Report Type: Spontaneous
  Country: TR (occurrence: TR)
  Receive Date: 20140729
  Receipt Date: 20140729
  Transmission Date: 20150326
  Serious: Yes (Other)
  Sender: FDA-Public Use
  Company Number: PHHY2014TR091829

PATIENT
  Age: 27 Year
  Sex: Female

DRUGS (2)
  1. QUETIAPINE [Suspect]
     Active Substance: QUETIAPINE
     Indication: PSYCHOTIC DISORDER
     Dosage: 300 MG, UNK
  2. QUETIAPINE [Suspect]
     Active Substance: QUETIAPINE
     Dosage: 900 MG, UNK

REACTIONS (2)
  - Condition aggravated [Recovered/Resolved]
  - Psychiatric symptom [Recovered/Resolved]
